FAERS Safety Report 8436273-8 (Version None)
Quarter: 2012Q2

REPORT INFORMATION
  Report Type: 
  Country: None (occurrence: None)
  Receive Date: 20120614
  Receipt Date: 20120614
  Transmission Date: 20120825
  Serious: Yes (Hospitalization, Other)
  Sender: FDA-Public Use
  Company Number: US-ABBOTT-12P-163-0942564-00

PATIENT
  Age: 42 Year
  Sex: Female

DRUGS (23)
  1. SERTRALINE HYDROCHLORIDE [Concomitant]
     Indication: DEPRESSION
  2. HUMIRA [Suspect]
     Indication: CROHN'S DISEASE
     Dates: start: 20110101, end: 20120101
  3. SERTRALINE HYDROCHLORIDE [Concomitant]
     Indication: ANXIETY
     Dosage: 1/2 TAB AT NIGHT
  4. AMITRIPTYLINE HCL [Concomitant]
     Indication: FEELING OF RELAXATION
     Dosage: 1 TAB AT LUNCH AND 2 TABS AT NIGHT
  5. VITAMIN D [Concomitant]
     Indication: VITAMIN D DECREASED
  6. NABUMETONE [Concomitant]
     Indication: CROHN'S DISEASE
  7. PROMETHAZINE [Concomitant]
     Indication: NAUSEA
     Dosage: EVERY 4-6 HOURS, AS NEEDED
  8. PROTONICS [Suspect]
     Indication: PRODUCT USED FOR UNKNOWN INDICATION
  9. SPIRONOLACTONE [Concomitant]
     Indication: DIURETIC THERAPY
     Dosage: IN THE AM AND AT NOON
  10. CYCLOBENZAPRINE [Concomitant]
     Indication: FIBROMYALGIA
     Dosage: IN THE AM
  11. PROTONIX [Concomitant]
     Indication: GASTROOESOPHAGEAL REFLUX DISEASE
  12. VITAMIN B-12 [Concomitant]
     Indication: SUPPLEMENTATION THERAPY
  13. HUMIRA [Suspect]
     Dates: start: 20120301, end: 20120301
  14. HUMIRA [Suspect]
  15. CLONAZEPAM [Concomitant]
     Indication: INSOMNIA
     Dosage: 2 TABS AT NIGHT
  16. NABUMETONE [Concomitant]
     Indication: PAIN
  17. LORAZEPAM [Concomitant]
     Indication: FIBROMYALGIA
  18. TOPIRAMATE [Concomitant]
     Indication: MIGRAINE
  19. ATENOLOL [Concomitant]
     Indication: PRODUCT USED FOR UNKNOWN INDICATION
  20. SAVELLA [Concomitant]
     Indication: FIBROMYALGIA
     Dosage: 1 TAB IN THE AM AND AT NIGHT
  21. NABUMETONE [Concomitant]
     Indication: RHEUMATOID ARTHRITIS
     Dosage: 1 TAB IN THE AM AND AT NIGHT
  22. CRANBERRY GEL CAPS [Concomitant]
     Indication: VITAMIN SUPPLEMENTATION
  23. ALLOPURINOL [Concomitant]
     Indication: BLOOD URIC ACID INCREASED
     Dosage: DAILY

REACTIONS (6)
  - INJECTION SITE PAIN [None]
  - HAEMORRHAGE [None]
  - MIGRAINE [None]
  - PAIN [None]
  - INTESTINAL OBSTRUCTION [None]
  - ENDOMETRIAL ABLATION [None]
